FAERS Safety Report 8336597-9 (Version None)
Quarter: 2012Q2

REPORT INFORMATION
  Report Type: 
  Country: None (occurrence: None)
  Receive Date: 20120501
  Receipt Date: 20120416
  Transmission Date: 20120825
  Serious: Yes (Other)
  Sender: FDA-Public Use
  Company Number: NSR_00536_2012

PATIENT
  Sex: Female

DRUGS (10)
  1. VITAMIN B-12 [Concomitant]
  2. GABAPENTIN [Concomitant]
  3. VITAMIN D [Concomitant]
  4. ZETIA [Concomitant]
  5. LAMOTRIGINE [Suspect]
     Indication: CONVULSION
     Dosage: 125 MG, TID, ORAL
     Route: 048
     Dates: start: 20120201
  6. MICARDIS [Concomitant]
  7. CLONAZEPAM [Concomitant]
  8. OMEGA 2 FISH OIL [Concomitant]
  9. COUMADIN [Concomitant]
  10. FUROSEMIDE [Concomitant]

REACTIONS (8)
  - DIPLOPIA [None]
  - GAIT DISTURBANCE [None]
  - DYSSTASIA [None]
  - EXCESSIVE EYE BLINKING [None]
  - BALANCE DISORDER [None]
  - ASTHENIA [None]
  - CONVULSION [None]
  - SPEECH DISORDER [None]
